FAERS Safety Report 4897348-3 (Version None)
Quarter: 2005Q4

REPORT INFORMATION
  Report Type: 
  Country: None (occurrence: None)
  Receive Date: 20051223
  Receipt Date: 20051110
  Transmission Date: 20060501
  Serious: No
  Sender: FDA-Public Use
  Company Number: 05P-163-0316909-00

PATIENT
  Age: 51 Year
  Sex: Female
  Weight: 50.8029 kg

DRUGS (15)
  1. HUMIRA [Suspect]
     Indication: RHEUMATOID ARTHRITIS
     Dosage: SEE IMAGE
     Route: 058
     Dates: start: 20050801, end: 20050801
  2. HUMIRA [Suspect]
     Indication: RHEUMATOID ARTHRITIS
     Dosage: SEE IMAGE
     Route: 058
     Dates: start: 20050801, end: 20050901
  3. HUMIRA [Suspect]
     Indication: RHEUMATOID ARTHRITIS
     Dosage: SEE IMAGE
     Route: 058
     Dates: start: 20050901, end: 20051001
  4. HUMIRA [Suspect]
     Indication: RHEUMATOID ARTHRITIS
     Dosage: SEE IMAGE
     Route: 058
     Dates: start: 20051001
  5. PREDNISONE [Concomitant]
  6. HYDROXYCHLOROQUINE PHOSPHATE [Concomitant]
  7. OXAPROZIN [Concomitant]
  8. ATENOLOL [Concomitant]
  9. ALENDRONATE SODIUM [Concomitant]
  10. DEXTROPROPOXYPHENE HYDROCHLORIDE [Concomitant]
  11. RANITIDINE HYDROCHLORIDE [Concomitant]
  12. FOLGARD [Concomitant]
  13. MULTIVITAMIN [Concomitant]
  14. VIACTIV [Concomitant]
  15. ASPIRIN [Concomitant]

REACTIONS (2)
  - PYREXIA [None]
  - RHEUMATOID ARTHRITIS [None]
